FAERS Safety Report 8273318-2 (Version None)
Quarter: 2012Q2

REPORT INFORMATION
  Report Type: 
  Country: None (occurrence: None)
  Receive Date: 20120411
  Receipt Date: 20120404
  Transmission Date: 20120825
  Serious: No
  Sender: FDA-Public Use
  Company Number: PHHY2012BR026740

PATIENT
  Age: 8 Year
  Sex: Male
  Weight: 30 kg

DRUGS (3)
  1. RITALIN [Suspect]
     Dosage: 10 MG, UNK
  2. RITALIN LA [Suspect]
     Dosage: 20 MG
  3. RITALIN LA [Suspect]
     Dosage: 30 MG, UNK

REACTIONS (2)
  - THERAPEUTIC RESPONSE DECREASED [None]
  - ANXIETY [None]
